FAERS Safety Report 6974919-1 (Version None)
Quarter: 2010Q3

REPORT INFORMATION
  Report Type: 
  Country: None (occurrence: None)
  Receive Date: 20100909
  Receipt Date: 20081222
  Transmission Date: 20110219
  Serious: No
  Sender: FDA-Public Use
  Company Number: US-WYE-H07384308

PATIENT
  Age: 52 Year
  Sex: Female

DRUGS (5)
  1. PRISTIQ [Suspect]
     Indication: DEPRESSION
     Route: 048
     Dates: start: 20081022
  2. PROVIGIL [Concomitant]
  3. SYNTHROID [Concomitant]
  4. ZOMIG [Concomitant]
  5. EXCEDRIN (MIGRAINE) [Concomitant]

REACTIONS (1)
  - FEELING HOT [None]
